FAERS Safety Report 11223863 (Version 2)
Quarter: 2015Q3

REPORT INFORMATION
  Report Type: Spontaneous
  Country: US (occurrence: US)
  Receive Date: 20150629
  Receipt Date: 20150709
  Transmission Date: 20151125
  Serious: Yes (Hospitalization)
  Sender: FDA-Public Use
  Company Number: US-AUROBINDO-AUR-APL-2015-05416

PATIENT
  Age: 34 Year
  Sex: Male

DRUGS (1)
  1. OLANZAPINE TABLETS 20MG [Suspect]
     Active Substance: OLANZAPINE
     Indication: PRODUCT USED FOR UNKNOWN INDICATION
     Dosage: 20 DF, UNK
     Route: 048

REACTIONS (8)
  - Overdose [Unknown]
  - Muscle contractions involuntary [Unknown]
  - Compartment syndrome [Unknown]
  - Suicide attempt [Unknown]
  - Muscle tightness [Unknown]
  - Blood creatine phosphokinase increased [Unknown]
  - Miosis [Unknown]
  - Neuroleptic malignant syndrome [Unknown]
